FAERS Safety Report 4546715-6 (Version None)
Quarter: 2005Q1

REPORT INFORMATION
  Report Type: 
  Country: None (occurrence: None)
  Receive Date: 20050105
  Receipt Date: 20041220
  Transmission Date: 20050727
  Serious: Yes (Disabling, Other)
  Sender: FDA-Public Use
  Company Number: 2004-12-0977

PATIENT
  Age: 45 Year
  Sex: Male

DRUGS (2)
  1. CLARITIN [Suspect]
     Dosage: 10 MG QD ORAL
     Route: 048
  2. CELESTINE (BETAMETASONE) TABLETS [Suspect]
     Indication: RHINITIS ALLERGIC
     Dosage: 4 MG ORAL
     Route: 048
     Dates: start: 20041204, end: 20041206

REACTIONS (1)
  - HICCUPS [None]
